FAERS Safety Report 11922639 (Version 1)
Quarter: 2016Q1

REPORT INFORMATION
  Report Type: Spontaneous
  Country: GB (occurrence: GB)
  Receive Date: 20160115
  Receipt Date: 20160115
  Transmission Date: 20160526
  Serious: Yes (Hospitalization, Disabling)
  Sender: FDA-Public Use
  Company Number: GB-GILEAD-2016-0191484

PATIENT
  Age: 32 Year
  Sex: Male
  Weight: 68 kg

DRUGS (1)
  1. HARVONI [Suspect]
     Active Substance: LEDIPASVIR\SOFOSBUVIR
     Indication: HEPATITIS C VIRUS TEST POSITIVE
     Dosage: 1 DF, UNK
     Route: 048
     Dates: start: 20151202, end: 20151224

REACTIONS (5)
  - Agitation [Not Recovered/Not Resolved]
  - Stress [Unknown]
  - Anxiety [Unknown]
  - Paranoia [Not Recovered/Not Resolved]
  - Influenza [Not Recovered/Not Resolved]

NARRATIVE: CASE EVENT DATE: 201512
